FAERS Safety Report 11660313 (Version 1)
Quarter: 2015Q4

REPORT INFORMATION
  Report Type: Spontaneous
  Country: US (occurrence: US)
  Receive Date: 20151026
  Receipt Date: 20151026
  Transmission Date: 20160304
  Serious: No
  Sender: FDA-Public Use
  Company Number: PHHY2015US133541

PATIENT
  Sex: Female

DRUGS (1)
  1. PROMACTA [Suspect]
     Active Substance: ELTROMBOPAG OLAMINE
     Indication: HENOCH-SCHONLEIN PURPURA
     Dosage: 25 MG, QD
     Route: 048
     Dates: start: 201507

REACTIONS (6)
  - Muscle spasms [Unknown]
  - Diarrhoea [Unknown]
  - Abdominal distension [Unknown]
  - Alopecia [Unknown]
  - Influenza like illness [Unknown]
  - Pain [Unknown]
